FAERS Safety Report 11817513 (Version 4)
Quarter: 2017Q1

REPORT INFORMATION
  Report Type: Spontaneous
  Country: US (occurrence: US)
  Receive Date: 20151210
  Receipt Date: 20170306
  Transmission Date: 20170428
  Serious: Yes (Other)
  Sender: FDA-Public Use
  Company Number: US-JNJFOC-20151104762

PATIENT
  Age: 28 Year
  Sex: Male

DRUGS (12)
  1. RISPERDAL [Suspect]
     Active Substance: RISPERIDONE
     Indication: SLEEP DISORDER
     Route: 048
     Dates: end: 2011
  2. RISPERDAL [Suspect]
     Active Substance: RISPERIDONE
     Indication: SLEEP DISORDER
     Dosage: IN VARYING DOSES OF 0.25 MG, 0.50 MG, 1 MG AND 2 MG.
     Route: 048
     Dates: start: 2008, end: 2011
  3. RISPERDAL [Suspect]
     Active Substance: RISPERIDONE
     Indication: ADJUSTMENT DISORDER WITH ANXIETY
     Dosage: IN VARYING DOSES OF 0.25 MG, 0.50 MG, 1 MG, 2 MG, AND 4 MG.
     Route: 048
     Dates: start: 2005, end: 2010
  4. RISPERDAL [Suspect]
     Active Substance: RISPERIDONE
     Indication: SLEEP DISORDER
     Dosage: IN VARYING DOSES OF 0.25 MG, 0.50 MG, 1 MG, 2 MG, AND 4 MG.
     Route: 048
     Dates: start: 2005, end: 2010
  5. RISPERDAL [Suspect]
     Active Substance: RISPERIDONE
     Indication: ADJUSTMENT DISORDER WITH ANXIETY
     Dosage: IN VARYING DOSES OF 0.25 MG, 0.50 MG, 1 MG AND 2 MG.
     Route: 048
     Dates: start: 2008, end: 2011
  6. RISPERDAL [Suspect]
     Active Substance: RISPERIDONE
     Indication: ADJUSTMENT DISORDER WITH ANXIETY
     Route: 048
     Dates: end: 2011
  7. RISPERDAL [Suspect]
     Active Substance: RISPERIDONE
     Indication: NIGHTMARE
     Dosage: IN VARYING DOSES OF 0.25 MG, 0.50 MG, 1 MG, 2 MG, AND 4 MG.
     Route: 048
     Dates: start: 2005, end: 2010
  8. RISPERDAL [Suspect]
     Active Substance: RISPERIDONE
     Indication: NIGHTMARE
     Route: 048
     Dates: end: 2011
  9. RISPERDAL [Suspect]
     Active Substance: RISPERIDONE
     Indication: POST-TRAUMATIC STRESS DISORDER
     Dosage: IN VARYING DOSES OF 0.25 MG, 0.50 MG, 1 MG AND 2 MG.
     Route: 048
     Dates: start: 2008, end: 2011
  10. RISPERDAL [Suspect]
     Active Substance: RISPERIDONE
     Indication: POST-TRAUMATIC STRESS DISORDER
     Dosage: IN VARYING DOSES OF 0.25 MG, 0.50 MG, 1 MG, 2 MG, AND 4 MG.
     Route: 048
     Dates: start: 2005, end: 2010
  11. RISPERDAL [Suspect]
     Active Substance: RISPERIDONE
     Indication: NIGHTMARE
     Dosage: IN VARYING DOSES OF 0.25 MG, 0.50 MG, 1 MG AND 2 MG.
     Route: 048
     Dates: start: 2008, end: 2011
  12. RISPERDAL [Suspect]
     Active Substance: RISPERIDONE
     Indication: POST-TRAUMATIC STRESS DISORDER
     Route: 048
     Dates: end: 2011

REACTIONS (2)
  - Gynaecomastia [Unknown]
  - Obesity [Unknown]

NARRATIVE: CASE EVENT DATE: 20070823
